FAERS Safety Report 5431326-0 (Version None)
Quarter: 2007Q3

REPORT INFORMATION
  Report Type: 
  Country: None (occurrence: None)
  Receive Date: 20070830
  Receipt Date: 20070419
  Transmission Date: 20080115
  Serious: No
  Sender: FDA-Public Use
  Company Number: A0648060A

PATIENT
  Sex: Female

DRUGS (1)
  1. BUPROPION HYDROCHLORIDE [Suspect]
     Indication: DEPRESSION
     Dosage: 300MG UNKNOWN
     Route: 048

REACTIONS (5)
  - ABDOMINAL DISTENSION [None]
  - DEPRESSION [None]
  - DISCOMFORT [None]
  - DRUG INEFFECTIVE [None]
  - FLATULENCE [None]
